FAERS Safety Report 22100552 (Version 1)
Quarter: 2023Q1

REPORT INFORMATION
  Report Type: Spontaneous
  Country: CY (occurrence: None)
  Receive Date: 20230316
  Receipt Date: 20230316
  Transmission Date: 20230418
  Serious: Yes (Other)
  Sender: FDA-Public Use
  Company Number: 2023A058944

PATIENT
  Age: 78 Year
  Sex: Male

DRUGS (14)
  1. DAPAGLIFLOZIN [Suspect]
     Active Substance: DAPAGLIFLOZIN
     Indication: Chronic kidney disease
     Route: 048
     Dates: start: 20230217
  2. CALCITRIOL [Concomitant]
     Active Substance: CALCITRIOL
  3. URSODIOL [Concomitant]
     Active Substance: URSODIOL
  4. EVEROLIMUS [Concomitant]
     Active Substance: EVEROLIMUS
  5. FAMOTIDINE [Concomitant]
     Active Substance: FAMOTIDINE
  6. ALLOPURINOL [Concomitant]
     Active Substance: ALLOPURINOL
  7. SOLIFENACIN [Concomitant]
     Active Substance: SOLIFENACIN
  8. APIXAPAN [Concomitant]
  9. SPIRONOLACTONE [Concomitant]
     Active Substance: SPIRONOLACTONE
  10. RAMIPRIL [Concomitant]
     Active Substance: RAMIPRIL
  11. LOSARTAN [Concomitant]
     Active Substance: LOSARTAN
  12. AMLODIPINE [Concomitant]
     Active Substance: AMLODIPINE BESYLATE
  13. BISOPROLOL [Concomitant]
     Active Substance: BISOPROLOL
  14. BECO-B FORTE [Concomitant]

REACTIONS (2)
  - Nipple pain [Not Recovered/Not Resolved]
  - Breast pain [Not Recovered/Not Resolved]

NARRATIVE: CASE EVENT DATE: 20230224
